FAERS Safety Report 4313915-X (Version None)
Quarter: 2004Q1

REPORT INFORMATION
  Report Type: 
  Country: None (occurrence: None)
  Receive Date: 20040305
  Receipt Date: 20040206
  Transmission Date: 20041129
  Serious: Yes (Hospitalization)
  Sender: FDA-Public Use
  Company Number: 7433

PATIENT
  Age: 65 Year
  Sex: Male

DRUGS (12)
  1. LEUCOVORIN CALCIUM [Suspect]
     Indication: COLON CANCER
     Dosage: 500 MG/M2 IV
     Route: 042
     Dates: start: 20031222, end: 20031222
  2. LEUCOVORIN CALCIUM [Suspect]
     Indication: COLON CANCER
     Dosage: 500 MG/M2 IV
     Route: 042
     Dates: start: 20031229, end: 20031229
  3. LEUCOVORIN CALCIUM [Suspect]
     Indication: COLON CANCER
     Dosage: 500 MG/M2 IV
     Route: 042
     Dates: start: 20040119, end: 20040119
  4. FLUOROURACIL [Suspect]
     Indication: COLON CANCER
     Dosage: 2000 MG/M2/2000 MG/M2/1500 MG/M2 IV
     Route: 042
     Dates: start: 20031222, end: 20031222
  5. FLUOROURACIL [Suspect]
     Indication: COLON CANCER
     Dosage: 2000 MG/M2/2000 MG/M2/1500 MG/M2 IV
     Route: 042
     Dates: start: 20031229, end: 20031229
  6. FLUOROURACIL [Suspect]
     Indication: COLON CANCER
     Dosage: 2000 MG/M2/2000 MG/M2/1500 MG/M2 IV
     Route: 042
     Dates: start: 20040119, end: 20040119
  7. CETUXIMAB [Suspect]
     Indication: COLON CANCER
     Dosage: 250 MG/M2 IV
     Route: 042
     Dates: start: 20031222, end: 20031222
  8. CETUXIMAB [Suspect]
     Indication: COLON CANCER
     Dosage: 250 MG/M2 IV
     Route: 042
     Dates: start: 20031229, end: 20031229
  9. CETUXIMAB [Suspect]
     Indication: COLON CANCER
     Dosage: 250 MG/M2 IV
     Route: 042
     Dates: start: 20040119, end: 20040119
  10. OXALIPLATIN [Suspect]
     Indication: COLON CANCER
     Dosage: 50 MG/M2 IV
     Route: 042
     Dates: start: 20031222, end: 20031222
  11. OXALIPLATIN [Suspect]
     Indication: COLON CANCER
     Dosage: 50 MG/M2 IV
     Route: 042
     Dates: start: 20031229, end: 20031229
  12. OXALIPLATIN [Suspect]
     Indication: COLON CANCER
     Dosage: 50 MG/M2 IV
     Route: 042
     Dates: start: 20040119, end: 20040119

REACTIONS (4)
  - CLOSTRIDIAL INFECTION [None]
  - DEHYDRATION [None]
  - DIARRHOEA [None]
  - MUCOSAL INFLAMMATION [None]
